FAERS Safety Report 10216753 (Version 1)
Quarter: 2014Q2

REPORT INFORMATION
  Report Type: Spontaneous
  Country: US (occurrence: US)
  Receive Date: 20140604
  Receipt Date: 20140604
  Transmission Date: 20141212
  Serious: Yes (Hospitalization, Other)
  Sender: FDA-Public Use
  Company Number: US-PFIZER INC-2014151700

PATIENT
  Age: 57 Year
  Sex: Male
  Weight: 81.63 kg

DRUGS (2)
  1. CORTEF [Suspect]
     Indication: ADDISON^S DISEASE
     Dosage: 10 MG, 2X/DAY
     Route: 048
  2. VITAMIN B12 [Concomitant]
     Indication: VITAMIN B12 DEFICIENCY
     Dosage: 2 ML, 2X/WEEK

REACTIONS (3)
  - Adrenocortical insufficiency acute [Unknown]
  - Autoimmune disorder [Unknown]
  - Malabsorption [Unknown]
